FAERS Safety Report 6430036-0 (Version None)
Quarter: 2009Q4

REPORT INFORMATION
  Report Type: 
  Country: None (occurrence: None)
  Receive Date: 20091103
  Receipt Date: 20091019
  Transmission Date: 20100525
  Serious: Yes (Hospitalization)
  Sender: FDA-Public Use
  Company Number: 02100-JPN-04-0268

PATIENT
  Age: 74 Year
  Sex: Male
  Weight: 46.5 kg

DRUGS (19)
  1. PLETAL [Suspect]
     Indication: CEREBRAL INFARCTION
     Dosage: 81 MG, QD ORAL
     Route: 048
     Dates: start: 20040709, end: 20040930
  2. ASPIRIN [Suspect]
  3. ONON (PRANLUKAST) CAPSULE [Concomitant]
  4. SPIROPENT (CLENBUTEROL HYDROCHLORIDE) TABLET [Concomitant]
  5. ALESION (EPINASTINE HYDROCHLORIDE) TABLET [Concomitant]
  6. ALDECIN (BECLOMETASONE DIPROPIONATE) INHALANT [Concomitant]
  7. MEPTIN (PROCATEROL HYDROCHLORIDE) AEROSOL (SPRAY AND INHALATION) [Concomitant]
  8. NORVASK (AMLODIPINE) TABLET [Concomitant]
  9. PURSENNIDE (SENNA LEAF) TABLET [Concomitant]
  10. SELTOUCH (FELBINAC) TAPE (INCLUDING POULTICE) [Concomitant]
  11. RINDERON (BETAMETHASONE) CREAM [Concomitant]
  12. HEAVY MAGNESIUM OXIDE (MAGNESIUM OXIDE) POWDER (EXCEPT [DPO]) [Concomitant]
  13. GLUCAGON (GLUCAGON) INJECTION [Concomitant]
  14. GASCON (DIMETICONE) LIQUID [Concomitant]
  15. XYLOCAINE (LIDOCAINE HYDROCHLORIDE) LIQUID [Concomitant]
  16. XYLOCAINE (LIDOCAINE HYDROCHLORIDE) SPRAY (EXCEPT INHALATION) [Concomitant]
  17. VEEN F (ACETATED RINGER'S SOLUTION) INJECTION [Concomitant]
  18. VEEN 3G (MAINTENANCE MEDIUM WITH ACETIC ACID WITH GLUCOSE) INJECTION [Concomitant]
  19. UNIPHYL (THEOPHYLLINE) SLOW RELEASE TABLET [Concomitant]

REACTIONS (4)
  - GASTRIC ULCER HAEMORRHAGE [None]
  - HAEMATOCRIT DECREASED [None]
  - HAEMOGLOBIN DECREASED [None]
  - PLATELET COUNT INCREASED [None]
